FAERS Safety Report 11215957 (Version 1)
Quarter: 2015Q2

REPORT INFORMATION
  Report Type: Spontaneous
  Country: US (occurrence: US)
  Receive Date: 20150624
  Receipt Date: 20150624
  Transmission Date: 20150821
  Serious: Yes (Other)
  Sender: FDA-Public Use
  Company Number: US-PFIZER INC-2015211002

PATIENT
  Age: 47 Year
  Sex: Male

DRUGS (5)
  1. LYRICA [Suspect]
     Active Substance: PREGABALIN
     Dosage: 300 MG, DAILY
  2. ROXICODONE [Suspect]
     Active Substance: OXYCODONE HYDROCHLORIDE
     Dosage: 30 MG, AS NEEDED (UP TO 3 TIMES DAILY)
  3. NEXIUM [Suspect]
     Active Substance: ESOMEPRAZOLE MAGNESIUM
     Dosage: 1 DF, DAILY
  4. XANAX [Suspect]
     Active Substance: ALPRAZOLAM
     Dosage: 25 MG, AS NEEDED (DAILY)
  5. OXYCONTIN [Suspect]
     Active Substance: OXYCODONE HYDROCHLORIDE
     Dosage: 80 MG, DAILY

REACTIONS (2)
  - Seizure [Unknown]
  - Dry mouth [Unknown]

NARRATIVE: CASE EVENT DATE: 2006
